FAERS Safety Report 13111335 (Version 8)
Quarter: 2018Q4

REPORT INFORMATION
  Report Type: Report from Study
  Country: None (occurrence: HU)
  Receive Date: 20170112
  Receipt Date: 20181029
  Transmission Date: 20190204
  Serious: Yes (Life-Threatening, Hospitalization, Other)
  Sender: FDA-Public Use
  Company Number: HU-ABBVIE-16P-076-1810219-00

PATIENT
  Age: 74 Year
  Sex: Female

DRUGS (11)
  1. CORBILTA [Concomitant]
     Active Substance: CARBIDOPA\ENTACAPONE\LEVODOPA
     Indication: PARKINSON^S DISEASE
     Dosage: 50/12.5/200
     Route: 048
     Dates: start: 2006, end: 20161222
  2. RALNEA [Concomitant]
     Indication: RESTLESS LEGS SYNDROME
     Route: 048
     Dates: start: 2006
  3. ACLOTIN [Concomitant]
     Active Substance: TICLOPIDINE
     Indication: DEEP VEIN THROMBOSIS
     Route: 048
     Dates: start: 1990
  4. NEBILET [Concomitant]
     Active Substance: NEBIVOLOL
     Indication: TACHYCARDIA
     Route: 048
     Dates: start: 1990
  5. AZILECT [Concomitant]
     Active Substance: RASAGILINE MESYLATE
     Indication: PARKINSON^S DISEASE
     Route: 048
     Dates: start: 2006, end: 20161222
  6. STILNOX [Concomitant]
     Active Substance: ZOLPIDEM TARTRATE
     Indication: RESTLESS LEGS SYNDROME
     Route: 048
     Dates: start: 2006
  7. FRONTIN [Concomitant]
     Active Substance: ALPRAZOLAM
     Indication: ANXIETY
     Dosage: 0.125-0.125-0.25 MG
     Route: 048
     Dates: start: 2006
  8. PANTOPRAZOL [Concomitant]
     Active Substance: PANTOPRAZOLE SODIUM
     Indication: GASTRITIS PROPHYLAXIS
     Route: 048
     Dates: start: 1990
  9. DUODOPA [Suspect]
     Active Substance: CARBIDOPA\LEVODOPA
     Route: 050
     Dates: start: 20161223
  10. MADOPAR [Concomitant]
     Active Substance: BENSERAZIDE HYDROCHLORIDE\LEVODOPA
     Indication: PARKINSON^S DISEASE
     Dosage: 100/25 MG
     Route: 048
     Dates: start: 2006
  11. DUODOPA [Suspect]
     Active Substance: CARBIDOPA\LEVODOPA
     Indication: PARKINSON^S DISEASE
     Dosage: 0.8 ML/H
     Route: 050
     Dates: start: 20161018, end: 20161213

REACTIONS (2)
  - Gastrointestinal complication associated with device [Recovered/Resolved]
  - Peritonitis [Recovered/Resolved]

NARRATIVE: CASE EVENT DATE: 20161213
